FAERS Safety Report 20148346 (Version 1)
Quarter: 2021Q4

REPORT INFORMATION
  Report Type: Report from Study
  Country: DE (occurrence: GB)
  Receive Date: 20211204
  Receipt Date: 20211204
  Transmission Date: 20220303
  Serious: Yes (Other)
  Sender: FDA-Public Use
  Company Number: DE-AMAROX PHARMA GMBH-AMR2021DE02147

PATIENT

DRUGS (1)
  1. IMATINIB [Suspect]
     Active Substance: IMATINIB
     Indication: Neoplasm malignant
     Dosage: UNK
     Route: 065

REACTIONS (1)
  - Melaena [Unknown]
